FAERS Safety Report 8926264 (Version 1)
Quarter: 2012Q4

REPORT INFORMATION
  Report Type: 
  Country: IT (occurrence: IT)
  Receive Date: 20121126
  Receipt Date: 20121126
  Transmission Date: 20130627
  Serious: Yes (Life-Threatening, Other)
  Sender: FDA-Public Use
  Company Number: IT-BAYER-2012-122736

PATIENT
  Age: 41 Year
  Sex: Female

DRUGS (1)
  1. YAZ [Suspect]
     Indication: ORAL CONTRACEPTION
     Dosage: 3.02 mg, QD
     Route: 048
     Dates: start: 20120707, end: 20121007

REACTIONS (2)
  - Intracranial venous sinus thrombosis [Recovering/Resolving]
  - Cerebral haematoma [None]
